FAERS Safety Report 8049682-6 (Version None)
Quarter: 2012Q1

REPORT INFORMATION
  Report Type: 
  Country: None (occurrence: None)
  Receive Date: 20120117
  Receipt Date: 20120112
  Transmission Date: 20120608
  Serious: Yes (Hospitalization)
  Sender: FDA-Public Use
  Company Number: US-GLAXOSMITHKLINE-A0938815A

PATIENT
  Age: 56 Year
  Sex: Female
  Weight: 131.8 kg

DRUGS (8)
  1. CAPTOPRIL [Concomitant]
  2. INSULIN [Concomitant]
  3. ALBUTEROL [Concomitant]
  4. LIPITOR [Concomitant]
  5. AVANDIA [Suspect]
     Indication: DIABETES MELLITUS
     Dosage: 2MG TWICE PER DAY
     Route: 048
     Dates: start: 20021201, end: 20051201
  6. HYDROCHLOROTHIAZIDE [Concomitant]
  7. CLONIDINE [Concomitant]
  8. ATENOLOL [Concomitant]

REACTIONS (2)
  - CARDIAC FAILURE CONGESTIVE [None]
  - MYOCARDIAL INFARCTION [None]
